FAERS Safety Report 26174119 (Version 1)
Quarter: 2025Q4

REPORT INFORMATION
  Report Type: Spontaneous
  Country: US (occurrence: None)
  Receive Date: 20251217
  Receipt Date: 20251217
  Transmission Date: 20260118
  Serious: Yes (Hospitalization)
  Sender: FDA-CTU
  Company Number: None

PATIENT
  Age: 66 Year
  Sex: Female

DRUGS (4)
  1. ARALAST NP [Suspect]
     Active Substance: .ALPHA.1-PROTEINASE INHIBITOR HUMAN
     Indication: Alpha-1 antitrypsin deficiency
     Dosage: 5797 MG  EVERY 7 DAYS INTRAVENOUS
     Route: 042
     Dates: start: 20241121
  2. ARALAST NP [Suspect]
     Active Substance: .ALPHA.1-PROTEINASE INHIBITOR HUMAN
     Indication: Alpha-1 antitrypsin deficiency
     Dosage: 5797 MG EVERY 7 DAYS INTRAVENOUS
     Route: 042
     Dates: start: 20241121
  3. SOD CHLOR POS STERILE F (10ML) [Concomitant]
  4. NORMAL SALINE FLUSH (10ML) [Concomitant]

REACTIONS (3)
  - Sinus disorder [None]
  - Pneumonia [None]
  - Rhinovirus infection [None]

NARRATIVE: CASE EVENT DATE: 20251201
